FAERS Safety Report 7297789-3 (Version None)
Quarter: 2011Q1

REPORT INFORMATION
  Report Type: 
  Country: None (occurrence: None)
  Receive Date: 20110214
  Receipt Date: 20110214
  Transmission Date: 20110831
  Serious: Yes (Other)
  Sender: FDA-Public Use
  Company Number: None

PATIENT
  Age: 44 Year
  Sex: Female
  Weight: 66.6788 kg

DRUGS (3)
  1. MOXIFLOXACIN HCL [Suspect]
     Indication: CYSTITIS
     Dosage: 400 MG 1X/7DAYS PO
     Route: 048
     Dates: start: 20110124, end: 20110131
  2. MOXIFLOXACIN HCL [Suspect]
     Indication: BACTERIAL INFECTION
     Dosage: 400 MG 1X/7DAYS PO
     Route: 048
     Dates: start: 20110124, end: 20110131
  3. MOXIFLOXACIN HCL [Suspect]
     Indication: KIDNEY INFECTION
     Dosage: 400 MG 1X/7DAYS PO
     Route: 048
     Dates: start: 20110124, end: 20110131

REACTIONS (1)
  - ARTHRALGIA [None]
